FAERS Safety Report 11705362 (Version 2)
Quarter: 2015Q4

REPORT INFORMATION
  Report Type: Spontaneous
  Country: US (occurrence: US)
  Receive Date: 20151106
  Receipt Date: 20151229
  Transmission Date: 20160304
  Serious: No
  Sender: FDA-Public Use
  Company Number: US-ACTELION PHARMACEUTICALS US, INC.-A-US2015-126791

PATIENT
  Age: 68 Year
  Sex: Female

DRUGS (1)
  1. OPSUMIT [Suspect]
     Active Substance: MACITENTAN
     Indication: PULMONARY ARTERIAL HYPERTENSION
     Dosage: 10 MG, UNK
     Route: 048
     Dates: start: 20151015

REACTIONS (11)
  - Diarrhoea [Recovered/Resolved]
  - Bronchitis [Not Recovered/Not Resolved]
  - Dyspnoea [Recovered/Resolved]
  - Fluid retention [Not Recovered/Not Resolved]
  - Urinary retention [Not Recovered/Not Resolved]
  - Fatigue [Not Recovered/Not Resolved]
  - Hyperglycaemia [Not Recovered/Not Resolved]
  - Dysuria [Recovered/Resolved]
  - Cough [Recovered/Resolved]
  - Abasia [Not Recovered/Not Resolved]
  - Insomnia [Not Recovered/Not Resolved]
